FAERS Safety Report 9233422 (Version 1)
Quarter: 2013Q2

REPORT INFORMATION
  Report Type: Spontaneous
  Country: US (occurrence: US)
  Receive Date: 20130416
  Receipt Date: 20130416
  Transmission Date: 20140414
  Serious: No
  Sender: FDA-Public Use
  Company Number: US-BANPHARM-20131038

PATIENT
  Age: 87 Year
  Sex: Female
  Weight: 58.06 kg

DRUGS (2)
  1. ALEVE LIQUID GELS 220MG [Suspect]
     Indication: BACK PAIN
     Dosage: 1 DF, QD,
     Route: 048
     Dates: start: 200906
  2. SLEEPING PILL [Concomitant]

REACTIONS (2)
  - Oral discomfort [Recovered/Resolved]
  - Incorrect drug administration duration [Unknown]
